FAERS Safety Report 9925177 (Version 1)
Quarter: 2014Q1

REPORT INFORMATION
  Report Type: Spontaneous
  Country: US (occurrence: US)
  Receive Date: 20140226
  Receipt Date: 20140226
  Transmission Date: 20141002
  Serious: No
  Sender: FDA-Public Use
  Company Number: US-BAYER-2014-030311

PATIENT
  Age: 87 Year
  Sex: Female
  Weight: 48.53 kg

DRUGS (3)
  1. ALEVE TABLET [Suspect]
     Indication: ANALGESIC THERAPY
     Dosage: 2 DF, ONCE
     Route: 048
     Dates: start: 20140224, end: 20140224
  2. BAYER ASPIRIN REGIMEN ADULT LOW STRENGTH [Concomitant]
     Dosage: 1 DF, QD
     Route: 048
  3. OMEPRAZOLE [Concomitant]

REACTIONS (1)
  - Throat irritation [Not Recovered/Not Resolved]
